FAERS Safety Report 17241419 (Version 1)
Quarter: 2020Q1

REPORT INFORMATION
  Report Type: Spontaneous
  Country: FR (occurrence: FR)
  Receive Date: 20200107
  Receipt Date: 20200107
  Transmission Date: 20200409
  Serious: Yes (Death)
  Sender: FDA-Public Use
  Company Number: FR-TEVA-2019-FR-1162603

PATIENT
  Age: 85 Year
  Sex: Male
  Weight: 77 kg

DRUGS (18)
  1. FUROSEMIDE. [Suspect]
     Active Substance: FUROSEMIDE
     Indication: PRODUCT USED FOR UNKNOWN INDICATION
     Dosage: 80 MG
     Route: 048
  2. GEMCITABINE. [Suspect]
     Active Substance: GEMCITABINE
     Indication: URINARY TRACT INFECTION
     Dosage: 480 MG
     Route: 030
     Dates: start: 20190510, end: 20190519
  3. NORSET [Concomitant]
     Active Substance: MIRTAZAPINE
  4. ALLOPURINOL. [Concomitant]
     Active Substance: ALLOPURINOL
  5. ZYMAD [Concomitant]
     Active Substance: CHOLECALCIFEROL
  6. DOLIPRANE [Concomitant]
     Active Substance: ACETAMINOPHEN
  7. CORDARONE [Concomitant]
     Active Substance: AMIODARONE HYDROCHLORIDE
  8. COLCHIMAX, COMPRIME PELLICULE [Suspect]
     Active Substance: COLCHICINE\OPIUM\TIEMONIUM METHYLSULFATE
     Indication: ARTHRALGIA
     Dosage: 1 DOSAGE FORMS
     Route: 048
     Dates: start: 20190510, end: 20190525
  9. BISOCE 2,5 MG, COMPRIME PELLICULE SECABLE [Concomitant]
     Active Substance: BISOPROLOL FUMARATE
  10. MOVICOL [Concomitant]
     Active Substance: POLYETHYLENE GLYCOL 3350\POTASSIUM CHLORIDE\SODIUM BICARBONATE\SODIUM CHLORIDE
  11. IKOREL 20 MG, COMPRIME [Concomitant]
     Active Substance: NICORANDIL
  12. ATORVASTATINE [Suspect]
     Active Substance: ATORVASTATIN
     Indication: PROPHYLAXIS
     Dosage: 10 MG
     Route: 048
  13. LANSOYL [Concomitant]
     Active Substance: MINERAL OIL
  14. PREDNISONE. [Concomitant]
     Active Substance: PREDNISONE
  15. TARDYFERON [Concomitant]
     Active Substance: FERROUS SULFATE
  16. ASPIRINE PROTECT [Concomitant]
     Active Substance: ASPIRIN
  17. SPECIAFOLDINE [Concomitant]
     Active Substance: FOLIC ACID
  18. ESOMEPRAZOLE. [Concomitant]
     Active Substance: ESOMEPRAZOLE MAGNESIUM

REACTIONS (4)
  - Acute kidney injury [Fatal]
  - Metabolic acidosis [Fatal]
  - Accidental overdose [Fatal]
  - Pancytopenia [Fatal]

NARRATIVE: CASE EVENT DATE: 20190525
